FAERS Safety Report 16825686 (Version 5)
Quarter: 2021Q2

REPORT INFORMATION
  Report Type: Report from Study
  Country: FR (occurrence: FR)
  Receive Date: 20190919
  Receipt Date: 20210421
  Transmission Date: 20210716
  Serious: Yes (Hospitalization)
  Sender: FDA-Public Use
  Company Number: FR-ROCHE-2407814

PATIENT
  Age: 71 Year
  Sex: Male
  Weight: 62.9 kg

DRUGS (10)
  1. BACTRIM [Concomitant]
     Active Substance: SULFAMETHOXAZOLE\TRIMETHOPRIM
     Route: 048
     Dates: start: 20190130, end: 20200129
  2. POLATUZUMAB VEDOTIN. [Suspect]
     Active Substance: POLATUZUMAB VEDOTIN
     Indication: DIFFUSE LARGE B-CELL LYMPHOMA
     Dosage: MOST RECENT DOSE OF POLATUZUMAB VEDOTIN 114 MG PRIOR TO SAE ONSET ON 15 MAY 2019
     Route: 042
     Dates: start: 20190130
  3. CALCIUM FOLINATE [Concomitant]
     Active Substance: LEUCOVORIN CALCIUM
     Route: 048
     Dates: start: 20190129, end: 20200128
  4. DOXORUBICIN [Suspect]
     Active Substance: DOXORUBICIN
     Indication: DIFFUSE LARGE B-CELL LYMPHOMA
     Dosage: DATE OF MOST RECENT DOSE (89 MG) OF DOXORUBICIN PRIOR TO SAE ONSET WAS ON 15/MAY/2019
     Route: 042
     Dates: start: 20190129
  5. PLACEBO [Suspect]
     Active Substance: UNSPECIFIED INGREDIENT
     Indication: DIFFUSE LARGE B-CELL LYMPHOMA
     Dosage: DATE OF MOST RECENT DOSE OF BLINDED VINCRISTINE PRIOR TO SAE ONSET 15 MAY 2019
     Route: 042
     Dates: start: 20190129
  6. CYCLOPHOSPHAMIDE. [Suspect]
     Active Substance: CYCLOPHOSPHAMIDE
     Indication: DIFFUSE LARGE B-CELL LYMPHOMA
     Dosage: DATE OF MOST RECENT DOSE (1340 MG) OF CYCLOPHOSPHAMIDE PRIOR TO SAE ONSET 15/MAY/2019
     Route: 042
     Dates: start: 20190129
  7. RITUXIMAB. [Suspect]
     Active Substance: RITUXIMAB
     Indication: DIFFUSE LARGE B-CELL LYMPHOMA
     Dosage: DATE OF MOST RECENT DOSE (670 MG) OF RITUXIMAB PRIOR TO SAE ONSET WAS ON 26/JUN/2019
     Route: 042
     Dates: start: 20190129
  8. ZOLOFT [Concomitant]
     Active Substance: SERTRALINE HYDROCHLORIDE
     Indication: DEPRESSION
     Route: 048
  9. VALACICLOVIR [Concomitant]
     Active Substance: VALACYCLOVIR HYDROCHLORIDE
     Route: 048
     Dates: start: 20190128, end: 20200129
  10. PREDNISONE. [Suspect]
     Active Substance: PREDNISONE
     Indication: DIFFUSE LARGE B-CELL LYMPHOMA
     Dosage: 100 MILLIGRAMS PER DAY (MG/DAY) ORALLY (PO) ON DAYS 1?5 OF EVERY 21?DAY CYCLE FOR 6 CYCLES. ?DATE O
     Route: 048
     Dates: start: 20190129

REACTIONS (1)
  - Urinary tract infection [Recovered/Resolved]

NARRATIVE: CASE EVENT DATE: 20190828
